FAERS Safety Report 5903830-X (Version None)
Quarter: 2008Q3

REPORT INFORMATION
  Report Type: 
  Country: None (occurrence: None)
  Receive Date: 20080919
  Receipt Date: 20080812
  Transmission Date: 20090109
  Serious: Yes (Hospitalization)
  Sender: FDA-Public Use
  Company Number: US-WYE-H05563108

PATIENT
  Age: 70 Year
  Sex: Female
  Weight: 49.94 kg

DRUGS (8)
  1. PRISTIQ [Suspect]
     Indication: DEPRESSION
     Dosage: 50 MG 1X PER 1 DAY, ORAL ; 50 MG 1X PER 1 DAY, ORAL
     Route: 048
     Dates: start: 20080806, end: 20080810
  2. PRISTIQ [Suspect]
     Indication: DEPRESSION
     Dosage: 50 MG 1X PER 1 DAY, ORAL ; 50 MG 1X PER 1 DAY, ORAL
     Route: 048
     Dates: start: 20080812
  3. LORAZEPAM [Concomitant]
  4. LOVASTATIN [Concomitant]
  5. AMITIZA [Concomitant]
  6. DIOVAN [Concomitant]
  7. LUMIDON (BELLADONNA ALKALOIDS/PAPVERINE HYDROCHLORIDE/PHENOBARBITAL) [Concomitant]
  8. METFORMIN HCL [Concomitant]

REACTIONS (6)
  - ASTHENIA [None]
  - COLD SWEAT [None]
  - DIZZINESS [None]
  - HEADACHE [None]
  - NAUSEA [None]
  - PRESYNCOPE [None]
